FAERS Safety Report 9387981 (Version 1)
Quarter: 2013Q3

REPORT INFORMATION
  Report Type: Spontaneous
  Country: US (occurrence: US)
  Receive Date: 20130708
  Receipt Date: 20130708
  Transmission Date: 20140515
  Serious: No
  Sender: FDA-Public Use
  Company Number: US-BAYER-2013-077656

PATIENT
  Age: 74 Year
  Sex: Male

DRUGS (4)
  1. LEVITRA [Suspect]
     Indication: ERECTILE DYSFUNCTION
     Dosage: 20 MG, ONCE
     Route: 048
     Dates: start: 20130621, end: 20130621
  2. ATORVASTATIN [Concomitant]
     Dosage: 10 MG, QD
     Route: 048
  3. VITAMIN D [Concomitant]
  4. ASPIRIN [Concomitant]
     Dosage: 81 MG, QD

REACTIONS (2)
  - Muscle spasms [Recovering/Resolving]
  - Muscle twitching [Recovering/Resolving]
